FAERS Safety Report 8183122-1 (Version None)
Quarter: 2012Q1

REPORT INFORMATION
  Report Type: 
  Country: None (occurrence: None)
  Receive Date: 20120201
  Receipt Date: 20101208
  Transmission Date: 20120608
  Serious: No
  Sender: FDA-Public Use
  Company Number: 259190USA

PATIENT
  Sex: Male

DRUGS (1)
  1. PROPOXYPHENE NAPSYLATE AND ACETAMINOPHEN [Suspect]
     Dates: end: 20101101

REACTIONS (1)
  - FORMICATION [None]
